FAERS Safety Report 4357182-X (Version None)
Quarter: 2004Q2

REPORT INFORMATION
  Report Type: 
  Country: None (occurrence: None)
  Receive Date: 20040511
  Receipt Date: 20040511
  Transmission Date: 20050107
  Serious: Yes (Hospitalization)
  Sender: FDA-Public Use
  Company Number: None

PATIENT
  Age: 53 Year
  Sex: Male
  Weight: 66.2 kg

DRUGS (11)
  1. ZOSYN [Suspect]
  2. HYDROCODONE/ACETAMINOPHEN [Concomitant]
  3. CLORHEXIDINE [Concomitant]
  4. SODIUM CHLORIDE INJ [Concomitant]
  5. ATENOLOL [Concomitant]
  6. SODIUM CHLORIDE INJ [Concomitant]
  7. HYDROCODONE/ACETAMINOPHEN [Concomitant]
  8. CODEINE SULFATE [Concomitant]
  9. COLESTIPOL [Concomitant]
  10. IBUPROFEN [Concomitant]
  11. TRAMADOL HCL [Concomitant]

REACTIONS (4)
  - DIARRHOEA [None]
  - PYREXIA [None]
  - RASH [None]
  - VOMITING [None]
